FAERS Safety Report 5193849-1 (Version None)
Quarter: 2006Q4

REPORT INFORMATION
  Report Type: 
  Country: None (occurrence: None)
  Receive Date: 20061228
  Receipt Date: 20060530
  Transmission Date: 20070319
  Serious: Yes (Hospitalization)
  Sender: FDA-Public Use
  Company Number: AU-AVENTIS-200615693GDDC

PATIENT
  Age: 46 Year
  Sex: Female
  Weight: 88 kg

DRUGS (10)
  1. DOCETAXEL [Suspect]
     Indication: BREAST CANCER
     Route: 042
     Dates: start: 20060511, end: 20060511
  2. ADRIAMYCIN                         /00330901/ [Suspect]
     Indication: BREAST CANCER
     Route: 042
     Dates: start: 20060511, end: 20060511
  3. CYCLOPHOSPHAMIDE [Suspect]
     Indication: BREAST CANCER
     Route: 042
     Dates: start: 20060511, end: 20060511
  4. PEGFILGRASTIM [Concomitant]
     Route: 058
     Dates: start: 20060512, end: 20060522
  5. DEXAMETHASONE [Concomitant]
     Route: 048
     Dates: start: 20060510, end: 20060513
  6. DOLASETRON [Concomitant]
     Route: 042
     Dates: start: 20060511, end: 20060511
  7. DOLASETRON [Concomitant]
     Route: 048
     Dates: start: 20060512, end: 20060514
  8. ANASTROZOLE [Concomitant]
     Route: 048
     Dates: start: 20060701
  9. SLOW-K [Concomitant]
     Dosage: DOSE: 3 TABS DAILY
     Route: 048
     Dates: start: 20060422
  10. LEVOTHYROXINE SODIUM [Concomitant]
     Dosage: DOSE: 125 MCG
     Route: 048
     Dates: start: 20020101

REACTIONS (9)
  - CARDIOMYOPATHY [None]
  - COUGH [None]
  - DYSPNOEA [None]
  - FATIGUE [None]
  - HAEMORRHOIDS [None]
  - NEUTROPENIC INFECTION [None]
  - OEDEMA [None]
  - ORAL CANDIDIASIS [None]
  - PLEURAL EFFUSION [None]
